FAERS Safety Report 7830274-6 (Version None)
Quarter: 2011Q4

REPORT INFORMATION
  Report Type: 
  Country: None (occurrence: None)
  Receive Date: 20111021
  Receipt Date: 20111014
  Transmission Date: 20120403
  Serious: Yes (Death, Hospitalization)
  Sender: FDA-Public Use
  Company Number: CR-GENZYME-RENA-1001290

PATIENT
  Sex: Male
  Weight: 60 kg

DRUGS (9)
  1. IRON [Concomitant]
     Indication: ANAEMIA
     Route: 065
  2. COLCHICINE [Concomitant]
     Indication: GOUT
     Route: 065
  3. FOLIC ACID [Concomitant]
     Indication: ANAEMIA
     Route: 065
  4. HYDRALAZINE HCL [Concomitant]
     Indication: HYPERTENSION
     Route: 065
  5. INDOMETHACIN [Concomitant]
     Indication: GOUT
     Route: 065
  6. RENVELA [Suspect]
     Dosage: 1.6 G, TID
     Dates: start: 20110316
  7. RENVELA [Suspect]
     Indication: HYPERPHOSPHATAEMIA
     Dosage: 0.8 G, TID
     Route: 048
  8. KAYEXALATE [Concomitant]
     Indication: HYPERKALAEMIA
     Route: 065
  9. METILDOPA [Concomitant]
     Indication: HYPERTENSION
     Route: 065

REACTIONS (3)
  - HAEMODYNAMIC INSTABILITY [None]
  - GASTROINTESTINAL PERFORATION [None]
  - METABOLIC ACIDOSIS [None]
